FAERS Safety Report 8906340 (Version 1)
Quarter: 2012Q4

REPORT INFORMATION
  Report Type: Spontaneous
  Country: US (occurrence: None)
  Receive Date: 20121112
  Receipt Date: 20121112
  Transmission Date: 20130627
  Serious: Yes (Life-Threatening, Hospitalization, Disabling, Other)
  Sender: FDA-Public Use
  Company Number: None

PATIENT
  Age: 57 Year
  Sex: Male
  Weight: 109.1 kg

DRUGS (2)
  1. METOCLOPRAMIDE [Suspect]
     Indication: ESOPHAGEAL ACID REFLUX
     Dosage: metoclopramide 10 mg 2009
     Dates: start: 2007, end: 2007
  2. METOCLOPRAMIDE [Suspect]
     Indication: ESOPHAGEAL ACID REFLUX
     Dates: start: 2002, end: 2007

REACTIONS (22)
  - Abnormal behaviour [None]
  - Small intestine operation [None]
  - Diarrhoea [None]
  - Urinary tract infection [None]
  - Dyspepsia [None]
  - Diabetes mellitus [None]
  - Asthenia [None]
  - Dysarthria [None]
  - Depression [None]
  - Vomiting [None]
  - Pollakiuria [None]
  - Confusional state [None]
  - Heart rate irregular [None]
  - Hyperhidrosis [None]
  - Restlessness [None]
  - Nervousness [None]
  - Agitation [None]
  - Insomnia [None]
  - Balance disorder [None]
  - Visual impairment [None]
  - Convulsion [None]
  - Dyspnoea [None]
